FAERS Safety Report 16189059 (Version 1)
Quarter: 2019Q2

REPORT INFORMATION
  Report Type: Spontaneous
  Country: US (occurrence: US)
  Receive Date: 20190411
  Receipt Date: 20190411
  Transmission Date: 20190711
  Serious: Yes (Other)
  Sender: FDA-Public Use
  Company Number: None

PATIENT

DRUGS (1)
  1. LIDOCAINE TOPICAL [Suspect]
     Active Substance: LIDOCAINE

REACTIONS (1)
  - Pain [None]

NARRATIVE: CASE EVENT DATE: 20190411
